FAERS Safety Report 13119958 (Version 1)
Quarter: 2017Q1

REPORT INFORMATION
  Report Type: Report from Study
  Country: None (occurrence: BR)
  Receive Date: 20170117
  Receipt Date: 20170117
  Transmission Date: 20170428
  Serious: Yes (Other)
  Sender: FDA-Public Use
  Company Number: BR-ABBVIE-17P-020-1837418-00

PATIENT
  Age: 22 Year
  Sex: Female
  Weight: 46 kg

DRUGS (3)
  1. OMEPRAZOLE. [Concomitant]
     Active Substance: OMEPRAZOLE
     Indication: PROPHYLAXIS
  2. HUMIRA [Suspect]
     Active Substance: ADALIMUMAB
     Indication: CROHN^S DISEASE
     Route: 058
     Dates: start: 20151105, end: 20161213
  3. OMEPRAZOLE. [Concomitant]
     Active Substance: OMEPRAZOLE
     Indication: GASTRIC DISORDER
     Route: 048
     Dates: start: 20170106

REACTIONS (6)
  - Lymph node abscess [Unknown]
  - Animal scratch [Recovering/Resolving]
  - Monocyte count increased [Unknown]
  - Nodule [Recovered/Resolved]
  - Nodule [Recovered/Resolved]
  - Investigation abnormal [Unknown]

NARRATIVE: CASE EVENT DATE: 20161210
